FAERS Safety Report 15196925 (Version 1)
Quarter: 2018Q3

REPORT INFORMATION
  Report Type: Spontaneous
  Country: DK (occurrence: DK)
  Receive Date: 20180725
  Receipt Date: 20180725
  Transmission Date: 20181010
  Serious: Yes (Other)
  Sender: FDA-Public Use
  Company Number: DK-TEVA-2018-DK-929456

PATIENT
  Age: 35 Year
  Sex: Male

DRUGS (1)
  1. IBUPROFEN. [Suspect]
     Active Substance: IBUPROFEN
     Dosage: STRENGTH: UNKNOWN.?DOSE: UP TO 2 TIMES DAILY.
     Route: 048
     Dates: start: 2017

REACTIONS (2)
  - Deafness [Unknown]
  - Tinnitus [Unknown]

NARRATIVE: CASE EVENT DATE: 2017
